FAERS Safety Report 25856370 (Version 1)
Quarter: 2025Q3

REPORT INFORMATION
  Report Type: Report from Study
  Country: US (occurrence: US)
  Receive Date: 20250928
  Receipt Date: 20250928
  Transmission Date: 20251021
  Serious: Yes (Other)
  Sender: ABBVIE
  Company Number: US-ABBVIE-6478368

PATIENT
  Sex: Female

DRUGS (1)
  1. IMBRUVICA [Suspect]
     Active Substance: IBRUTINIB
     Indication: Lymphocytic leukaemia
     Route: 048
     Dates: start: 20240910

REACTIONS (8)
  - Cyst [Unknown]
  - Hot flush [Unknown]
  - Sinus disorder [Unknown]
  - Fatigue [Unknown]
  - Energy increased [Unknown]
  - Depressed mood [Unknown]
  - Mass [Unknown]
  - Back pain [Unknown]
